FAERS Safety Report 19427098 (Version 1)
Quarter: 2021Q2

REPORT INFORMATION
  Report Type: Spontaneous
  Country: IE (occurrence: IE)
  Receive Date: 20210617
  Receipt Date: 20210617
  Transmission Date: 20210717
  Serious: Yes (Other)
  Sender: FDA-Public Use
  Company Number: IE-FLORIDAPHARMA-IE-2021FPPLIT00068

PATIENT
  Age: 36 Year
  Sex: Male

DRUGS (6)
  1. VALPROATE [Concomitant]
     Active Substance: VALPROIC ACID
     Route: 065
  2. LEVETIRACETAM. [Suspect]
     Active Substance: LEVETIRACETAM
     Indication: FRONTAL LOBE EPILEPSY
     Route: 065
  3. VALPROATE [Concomitant]
     Active Substance: VALPROIC ACID
     Indication: FRONTAL LOBE EPILEPSY
     Route: 065
  4. LAMOTRIGINE. [Concomitant]
     Active Substance: LAMOTRIGINE
     Route: 065
  5. CLOBAZAM. [Interacting]
     Active Substance: CLOBAZAM
     Indication: FRONTAL LOBE EPILEPSY
     Route: 065
  6. LAMOTRIGINE. [Concomitant]
     Active Substance: LAMOTRIGINE
     Indication: FRONTAL LOBE EPILEPSY
     Route: 065

REACTIONS (1)
  - Seizure [Unknown]
